FAERS Safety Report 7230553-X (Version None)
Quarter: 2011Q1

REPORT INFORMATION
  Report Type: 
  Country: None (occurrence: None)
  Receive Date: 20110118
  Receipt Date: 20110106
  Transmission Date: 20110831
  Serious: Yes (Other)
  Sender: FDA-Public Use
  Company Number: PHHY2010US67452

PATIENT
  Sex: Female

DRUGS (8)
  1. VITAMIN B-12 [Concomitant]
  2. ZETIA [Concomitant]
  3. BENAZEPRIL [Concomitant]
  4. POTASSIUM [Concomitant]
  5. RECLAST [Suspect]
     Dosage: UNK
     Dates: start: 20091101
  6. CELEBREX [Concomitant]
  7. LIPITOR [Concomitant]
     Dosage: 80 MG, ONCE DAILY
  8. HYDROCO/APAP 5-325 [Concomitant]

REACTIONS (2)
  - DRUG INEFFECTIVE [None]
  - SPINAL FRACTURE [None]
